FAERS Safety Report 9126008 (Version 3)
Quarter: 2015Q3

REPORT INFORMATION
  Report Type: Spontaneous
  Country: FR (occurrence: FR)
  Receive Date: 20130228
  Receipt Date: 20150903
  Transmission Date: 20151125
  Serious: Yes (Hospitalization)
  Sender: FDA-Public Use
  Company Number: FR-GE HEALTHCARE MEDICAL DIAGNOSTICS-VISP-NO-1012S-0570

PATIENT
  Age: 30 Year
  Sex: Female

DRUGS (12)
  1. VISIPAQUE [Suspect]
     Active Substance: IODIXANOL
     Indication: DIAGNOSTIC PROCEDURE
  2. COTRIMOXAZOLE [Suspect]
     Active Substance: SULFAMETHOXAZOLE\TRIMETHOPRIM
     Dates: start: 20100917, end: 20100923
  3. CEFOTAXIME SODIUM (CLAFORAN) [Suspect]
     Active Substance: CEFOTAXIME SODIUM
  4. FOSFOMYCIN [Suspect]
     Active Substance: FOSFOMYCIN
     Route: 048
     Dates: start: 20100901, end: 20100903
  5. VISIPAQUE [Suspect]
     Active Substance: IODIXANOL
     Indication: BRAIN NEOPLASM MALIGNANT
     Dosage: DOSE NOT REPORTED
     Route: 065
     Dates: start: 20100921, end: 20100921
  6. VISIPAQUE [Suspect]
     Active Substance: IODIXANOL
     Indication: MENINGITIS ENTEROCOCCAL
  7. GENTAMICINE [Suspect]
     Active Substance: GENTAMICIN
     Route: 042
     Dates: start: 20100903, end: 20100907
  8. FOSFOMYCIN [Suspect]
     Active Substance: FOSFOMYCIN
     Route: 065
     Dates: start: 20100925, end: 20100927
  9. VANCOMYCIN [Suspect]
     Active Substance: VANCOMYCIN
     Route: 042
     Dates: start: 20100903, end: 20100927
  10. GENTAMICINE [Suspect]
     Active Substance: GENTAMICIN
     Route: 042
     Dates: start: 20100923, end: 20100925
  11. CIPROFLOXACIN (CIFLOX) [Suspect]
     Active Substance: CIPROFLOXACIN
     Dates: start: 20100923, end: 20100925
  12. AZTREONAM (AZACTAM POWDER FOR PARENTERAL USE) [Suspect]
     Active Substance: AZTREONAM
     Dates: start: 20100917, end: 20100923

REACTIONS (1)
  - Drug reaction with eosinophilia and systemic symptoms [Recovered/Resolved]

NARRATIVE: CASE EVENT DATE: 20100925
